FAERS Safety Report 5894786-7 (Version None)
Quarter: 2008Q3

REPORT INFORMATION
  Report Type: 
  Country: None (occurrence: None)
  Receive Date: 20080924
  Receipt Date: 20080618
  Transmission Date: 20090109
  Serious: No
  Sender: FDA-Public Use
  Company Number: US-ASTRAZENECA-2008UW12332

PATIENT
  Age: 61 Year
  Sex: Female

DRUGS (6)
  1. SEROQUEL [Suspect]
     Route: 048
     Dates: start: 20080523
  2. SEROQUEL [Suspect]
     Route: 048
     Dates: start: 20080606
  3. EFFEXOR [Concomitant]
  4. ESTRADIAL [Concomitant]
  5. MEDROXYPROGESTERONE [Concomitant]
  6. LEVOTHYROXINE SODIUM [Concomitant]

REACTIONS (1)
  - MENORRHAGIA [None]
